FAERS Safety Report 5812334-4 (Version None)
Quarter: 2008Q3

REPORT INFORMATION
  Report Type: 
  Country: None (occurrence: None)
  Receive Date: 20080716
  Receipt Date: 20080705
  Transmission Date: 20090109
  Serious: Yes (Other)
  Sender: FDA-Public Use
  Company Number: US-PFIZER INC-2008032658

PATIENT
  Sex: Female

DRUGS (3)
  1. CHANTIX [Suspect]
  2. XANAX [Suspect]
  3. ALL OTHER THERAPEUTIC PRODUCTS [Suspect]

REACTIONS (4)
  - GLUCOSE TOLERANCE IMPAIRED [None]
  - IMPAIRED DRIVING ABILITY [None]
  - NEOPLASM MALIGNANT [None]
  - SUICIDAL IDEATION [None]
